FAERS Safety Report 8843033 (Version 1)
Quarter: 2012Q4

REPORT INFORMATION
  Report Type: 
  Country: US (occurrence: US)
  Receive Date: 20121016
  Receipt Date: 20121016
  Transmission Date: 20130627
  Serious: Yes (Other)
  Sender: FDA-Public Use
  Company Number: US-GLAXOSMITHKLINE-A0997331A

PATIENT
  Age: 46 Year
  Sex: Male

DRUGS (15)
  1. POTIGA [Suspect]
     Indication: CONVULSION
     Dosage: 100MG Three times per day
     Route: 048
     Dates: start: 20120925, end: 20121008
  2. DIAZEPAM [Suspect]
     Indication: PRODUCT USED FOR UNKNOWN INDICATION
  3. DIAZEPAM [Concomitant]
  4. LAMICTAL [Concomitant]
  5. DILANTIN [Concomitant]
  6. KEPPRA [Concomitant]
  7. MOBIC [Concomitant]
  8. MS CONTIN [Concomitant]
  9. OXYCODONE [Concomitant]
  10. BUSPAR [Concomitant]
  11. PRILOSEC [Concomitant]
  12. CARDURA [Concomitant]
  13. PROPRANOLOL [Concomitant]
  14. NORVASC [Concomitant]
  15. FINASTERIDE [Concomitant]

REACTIONS (3)
  - Urinary retention [Unknown]
  - Balance disorder [Unknown]
  - Hypersomnia [Unknown]
